FAERS Safety Report 7396846-0 (Version None)
Quarter: 2011Q2

REPORT INFORMATION
  Report Type: 
  Country: None (occurrence: None)
  Receive Date: 20110406
  Receipt Date: 20110328
  Transmission Date: 20111010
  Serious: Yes (Other)
  Sender: FDA-Public Use
  Company Number: CN-ASTRAZENECA-2011SE16200

PATIENT
  Age: 1 Year
  Sex: Male

DRUGS (3)
  1. BRICANYL [Concomitant]
  2. ATROVENT [Concomitant]
     Dosage: HALF SPRAY DAILY
  3. PULMICORT RESPULES [Suspect]
     Indication: PNEUMONIA
     Route: 055

REACTIONS (2)
  - ASTHMA [None]
  - DRUG INEFFECTIVE [None]
